FAERS Safety Report 8265227-X (Version None)
Quarter: 2012Q2

REPORT INFORMATION
  Report Type: 
  Country: None (occurrence: None)
  Receive Date: 20120406
  Receipt Date: 20120326
  Transmission Date: 20120825
  Serious: Yes (Hospitalization, Other)
  Sender: FDA-Public Use
  Company Number: US-ROCHE-792989

PATIENT
  Sex: Male
  Weight: 56.7 kg

DRUGS (1)
  1. ACCUTANE [Suspect]
     Indication: ACNE
     Route: 048
     Dates: start: 20050110, end: 20050707

REACTIONS (12)
  - ARTHRITIS [None]
  - NASAL DRYNESS [None]
  - IRRITABLE BOWEL SYNDROME [None]
  - CHRONIC OBSTRUCTIVE PULMONARY DISEASE [None]
  - ATELECTASIS [None]
  - COLITIS ULCERATIVE [None]
  - LOBAR PNEUMONIA [None]
  - INTERSTITIAL LUNG DISEASE [None]
  - INFLAMMATORY BOWEL DISEASE [None]
  - CROHN'S DISEASE [None]
  - LIP DRY [None]
  - EMOTIONAL DISTRESS [None]
